FAERS Safety Report 15943225 (Version 3)
Quarter: 2019Q2

REPORT INFORMATION
  Report Type: Spontaneous
  Country: US (occurrence: US)
  Receive Date: 20190210
  Receipt Date: 20190410
  Transmission Date: 20190711
  Serious: Yes (Other)
  Sender: FDA-Public Use
  Company Number: US-ASTRAZENECA-2018SF26632

PATIENT
  Age: 38 Year
  Sex: Female
  Weight: 93.9 kg

DRUGS (12)
  1. OXYCODONE [Concomitant]
     Active Substance: OXYCODONE
  2. OMEPRAZOLE. [Suspect]
     Active Substance: OMEPRAZOLE
     Dosage: GENERIC (OMEPRAZOLE)
     Route: 065
  3. ATENOLOL. [Concomitant]
     Active Substance: ATENOLOL
  4. PEPTO-BISMOL [Concomitant]
     Active Substance: BISMUTH SUBSALICYLATE
  5. NEXIUM [Suspect]
     Active Substance: ESOMEPRAZOLE MAGNESIUM
     Indication: GASTROOESOPHAGEAL REFLUX DISEASE
     Route: 048
     Dates: start: 2005
  6. SIMVASTATIN. [Concomitant]
     Active Substance: SIMVASTATIN
  7. PEPCID [Concomitant]
     Active Substance: FAMOTIDINE
  8. NOVOLOG [Concomitant]
     Active Substance: INSULIN ASPART
  9. TRAMADOL. [Concomitant]
     Active Substance: TRAMADOL
  10. PREDNISOLONE. [Concomitant]
     Active Substance: PREDNISOLONE
  11. NEXIUM [Suspect]
     Active Substance: ESOMEPRAZOLE MAGNESIUM
     Indication: GASTROOESOPHAGEAL REFLUX DISEASE
     Route: 048
     Dates: start: 2005, end: 2006
  12. TUMS [Concomitant]
     Active Substance: CALCIUM CARBONATE

REACTIONS (6)
  - Hyperparathyroidism secondary [Unknown]
  - Chronic kidney disease [Unknown]
  - Nephrogenic anaemia [Unknown]
  - Chronic kidney disease-mineral and bone disorder [Unknown]
  - Renal failure [Not Recovered/Not Resolved]
  - End stage renal disease [Unknown]

NARRATIVE: CASE EVENT DATE: 2004
